FAERS Safety Report 4356134-3 (Version None)
Quarter: 2004Q2

REPORT INFORMATION
  Report Type: 
  Country: None (occurrence: None)
  Receive Date: 20040511
  Receipt Date: 20040406
  Transmission Date: 20050107
  Serious: Yes (Death, Hospitalization)
  Sender: FDA-Public Use
  Company Number: PHHO2004CA05254

PATIENT
  Age: 79 Year
  Sex: Female
  Weight: 61 kg

DRUGS (10)
  1. EXELON [Suspect]
     Indication: DEMENTIA ALZHEIMER'S TYPE
     Dosage: 1.5 MG, BID
     Route: 048
     Dates: start: 20040310
  2. FOSAMAX [Concomitant]
     Indication: BLOOD PRESSURE
  3. SULFASALAZINE [Concomitant]
  4. THYROID TAB [Concomitant]
  5. CELEBREX [Concomitant]
  6. OXYBUTYNIN [Concomitant]
  7. RANITIDINE [Concomitant]
  8. ATENOLOL [Concomitant]
  9. PLAQUENIL [Concomitant]
  10. DYAZIDE [Concomitant]

REACTIONS (12)
  - BRADYCARDIA [None]
  - CARDIAC DEATH [None]
  - CONCOMITANT DISEASE PROGRESSION [None]
  - CONFUSIONAL STATE [None]
  - DEPRESSED LEVEL OF CONSCIOUSNESS [None]
  - ELECTROCARDIOGRAM ABNORMAL [None]
  - HYPERKALAEMIA [None]
  - HYPOTENSION [None]
  - RENAL FAILURE [None]
  - SEPTIC SHOCK [None]
  - TRANSIENT ISCHAEMIC ATTACK [None]
  - UNRESPONSIVE TO PAIN STIMULI [None]
